FAERS Safety Report 6175688-8 (Version None)
Quarter: 2009Q2

REPORT INFORMATION
  Report Type: 
  Country: None (occurrence: None)
  Receive Date: 20090427
  Receipt Date: 20090102
  Transmission Date: 20091009
  Serious: Yes (Hospitalization)
  Sender: FDA-Public Use
  Company Number: TEST00209000034

PATIENT
  Age: 64 Year
  Sex: Male
  Weight: 176.36 kg

DRUGS (1)
  1. ANDROGEL [Suspect]
     Indication: BLOOD TESTOSTERONE DECREASED
     Dosage: 5 GRAM(S) QD TRANSCUTANEOUS DAILY DOSE: 5 GRAM(S),  VIA PUMP
     Route: 062
     Dates: start: 20081214, end: 20081225

REACTIONS (3)
  - ANXIETY [None]
  - ASTHENIA [None]
  - DYSPNOEA [None]
